FAERS Safety Report 5090247-6 (Version None)
Quarter: 2006Q3

REPORT INFORMATION
  Report Type: 
  Country: None (occurrence: None)
  Receive Date: 20060828
  Receipt Date: 20060626
  Transmission Date: 20061208
  Serious: No
  Sender: FDA-Public Use
  Company Number: US-GLAXOSMITHKLINE-A0610317A

PATIENT
  Age: 64 Year
  Sex: Male

DRUGS (2)
  1. WELLBUTRIN XL [Suspect]
     Indication: DEPRESSION
     Dosage: 150MG PER DAY
     Route: 048
     Dates: start: 20060621
  2. INDERAL LA [Concomitant]

REACTIONS (10)
  - ANXIETY [None]
  - BACK PAIN [None]
  - CRYING [None]
  - DRUG INEFFECTIVE [None]
  - FLAT AFFECT [None]
  - IRRITABILITY [None]
  - MICTURITION URGENCY [None]
  - MUSCLE SPASMS [None]
  - NERVOUSNESS [None]
  - VISION BLURRED [None]
